FAERS Safety Report 23156738 (Version 1)
Quarter: 2023Q4

REPORT INFORMATION
  Report Type: Report from Study
  Country: CA (occurrence: CA)
  Receive Date: 20231107
  Receipt Date: 20231107
  Transmission Date: 20240110
  Serious: Yes (Other)
  Sender: FDA-Public Use
  Company Number: CA-JNJFOC-20231100729

PATIENT
  Sex: Female

DRUGS (1)
  1. REMICADE [Suspect]
     Active Substance: INFLIXIMAB
     Indication: Product used for unknown indication
     Dosage: TREATMENT DATE: 31-OCT-2023
     Route: 042

REACTIONS (4)
  - Weight decreased [Not Recovered/Not Resolved]
  - Eating disorder [Unknown]
  - Gastrointestinal disorder [Unknown]
  - Inappropriate schedule of product administration [Unknown]
